FAERS Safety Report 7395789-6 (Version None)
Quarter: 2011Q2

REPORT INFORMATION
  Report Type: 
  Country: None (occurrence: None)
  Receive Date: 20110405
  Receipt Date: 20110331
  Transmission Date: 20111010
  Serious: Yes (Other)
  Sender: FDA-Public Use
  Company Number: CA-MERCK-1103USA03130

PATIENT
  Age: 72 Year
  Sex: Female

DRUGS (4)
  1. JANUVIA [Suspect]
     Indication: TYPE 2 DIABETES MELLITUS
     Route: 048
     Dates: start: 20110101, end: 20110101
  2. WARFARIN [Concomitant]
     Route: 065
  3. CYMBALTA [Concomitant]
     Route: 065
     Dates: start: 20110101, end: 20110101
  4. JANUVIA [Suspect]
     Route: 048
     Dates: start: 20110228

REACTIONS (3)
  - CONFUSIONAL STATE [None]
  - CARDIAC FAILURE CONGESTIVE [None]
  - GAIT DISTURBANCE [None]
